FAERS Safety Report 8386214-7 (Version None)
Quarter: 2012Q2

REPORT INFORMATION
  Report Type: 
  Country: None (occurrence: None)
  Receive Date: 20120525
  Receipt Date: 20120521
  Transmission Date: 20120825
  Serious: Yes (Other)
  Sender: FDA-Public Use
  Company Number: US-PFIZER INC-2012088487

PATIENT
  Sex: Female
  Weight: 72.6 kg

DRUGS (7)
  1. LATANOPROST [Suspect]
     Indication: GLAUCOMA
     Dosage: ONE DROP IN BOTH EYES, 1X/DAY
     Route: 047
     Dates: start: 20120101, end: 20120328
  2. TRIAMTERENE [Concomitant]
     Indication: HYPERTENSION
     Dosage: UNK
  3. METFORMIN [Concomitant]
     Indication: DIABETES MELLITUS
     Dosage: UNK
  4. XALATAN [Suspect]
     Dosage: UNK
     Dates: start: 19971201, end: 20120101
  5. ATENOLOL [Concomitant]
     Indication: HYPERTENSION
     Dosage: UNK
  6. OMEPRAZOLE [Concomitant]
     Indication: GASTROOESOPHAGEAL REFLUX DISEASE
     Dosage: UNK
  7. VICODIN [Concomitant]
     Dosage: UNK

REACTIONS (6)
  - ORAL MUCOSAL BLISTERING [None]
  - BLISTER [None]
  - PRURITUS [None]
  - ORAL MUCOSAL EXFOLIATION [None]
  - URINARY TRACT INFECTION [None]
  - SKIN EXFOLIATION [None]
